FAERS Safety Report 25912715 (Version 1)
Quarter: 2025Q4

REPORT INFORMATION
  Report Type: Spontaneous
  Country: EU (occurrence: EU)
  Receive Date: 20251013
  Receipt Date: 20251013
  Transmission Date: 20260118
  Serious: Yes (Other)
  Sender: ALEXION PHARMACEUTICALS
  Company Number: None

PATIENT
  Age: 59 Year
  Sex: Male
  Weight: 90 kg

DRUGS (6)
  1. TICAGRELOR [Suspect]
     Active Substance: TICAGRELOR
     Dosage: 2 X PER DAG, 1 STUK
     Dates: start: 20241122, end: 20250702
  2. ASPIRIN [Concomitant]
     Active Substance: ASPIRIN
     Dosage: TABLET, 80 MG (MILLIGRAM)
  3. METOPROLOL [Concomitant]
     Active Substance: METOPROLOL
     Dosage: TABLET MET GEREGULEERDE AFGIFTE, 100 MG (MILLIGRAM)
  4. PERINDOPRIL [Concomitant]
     Active Substance: PERINDOPRIL
     Dosage: TABLET, 8 MG (MILLIGRAM)
  5. ROSUVASTATIN [Concomitant]
     Active Substance: ROSUVASTATIN
     Dosage: TABLET, 20 MG (MILLIGRAM)
  6. EZETIMIBE [Concomitant]
     Active Substance: EZETIMIBE
     Dosage: TABLET, 10 MG (MILLIGRAM)

REACTIONS (1)
  - Apnoea [Recovered/Resolved]
